FAERS Safety Report 11178314 (Version 2)
Quarter: 2015Q3

REPORT INFORMATION
  Report Type: Spontaneous
  Country: US (occurrence: US)
  Receive Date: 20150610
  Receipt Date: 20150805
  Transmission Date: 20151125
  Serious: Yes (Life-Threatening, Hospitalization, Other)
  Sender: FDA-Public Use
  Company Number: US-MERCK-1506USA004696

PATIENT
  Age: 87 Year
  Sex: Male
  Weight: 95.25 kg

DRUGS (10)
  1. PRAVASTATIN [Concomitant]
     Active Substance: PRAVASTATIN\PRAVASTATIN SODIUM
  2. FUROSEMIDE. [Concomitant]
     Active Substance: FUROSEMIDE
  3. OMEGA-3 MARINE TRIGLYCERIDES [Concomitant]
     Active Substance: FISH OIL
     Dosage: 1000 MG, 2 DAILY
  4. LISINOPRIL. [Concomitant]
     Active Substance: LISINOPRIL
  5. JANUVIA [Suspect]
     Active Substance: SITAGLIPTIN PHOSPHATE
     Indication: DIABETES MELLITUS
     Dosage: 500 MG (1 TABLET), BY MOUTH ONCE DAILY
     Route: 048
     Dates: end: 20140510
  6. AMLODIPINE [Concomitant]
     Active Substance: AMLODIPINE BESYLATE
  7. GABAPENTIN. [Concomitant]
     Active Substance: GABAPENTIN
  8. ATENOLOL. [Concomitant]
     Active Substance: ATENOLOL
  9. GLYBURIDE. [Concomitant]
     Active Substance: GLYBURIDE
  10. METFORMIN [Concomitant]
     Active Substance: METFORMIN HYDROCHLORIDE

REACTIONS (10)
  - Diabetes mellitus [Unknown]
  - Leukocytosis [Unknown]
  - Acute respiratory failure [Unknown]
  - Gastrooesophageal reflux disease [Unknown]
  - Hyperlipidaemia [Unknown]
  - Vomiting [Not Recovered/Not Resolved]
  - Pancreatitis acute [Unknown]
  - Obstructive airways disorder [Unknown]
  - Pain [Not Recovered/Not Resolved]
  - Abdominal pain [Not Recovered/Not Resolved]

NARRATIVE: CASE EVENT DATE: 20140428
